FAERS Safety Report 8789618 (Version 1)
Quarter: 2012Q4

REPORT INFORMATION
  Report Type: Spontaneous
  Country: US (occurrence: None)
  Receive Date: 20120910
  Receipt Date: 20120910
  Transmission Date: 20130627
  Serious: Yes (Hospitalization, Disabling, Other)
  Sender: FDA-Public Use
  Company Number: None

PATIENT
  Age: 23 Year
  Sex: Female
  Weight: 106.6 kg

DRUGS (2)
  1. VIIBRYD [Suspect]
     Indication: POST-TRAUMATIC STRESS DISORDER
     Dosage: 40 mg 1 x daily
     Dates: start: 20120520, end: 20120621
  2. VIIBRYD [Suspect]
     Indication: MAJOR DEPRESSIVE DISORDER NOS
     Dosage: 40 mg 1 x daily
     Dates: start: 20120520, end: 20120621

REACTIONS (8)
  - Panic reaction [None]
  - Confusional state [None]
  - Loss of consciousness [None]
  - Heart rate increased [None]
  - Paraesthesia [None]
  - Anxiety [None]
  - Thinking abnormal [None]
  - Mania [None]
